FAERS Safety Report 13655500 (Version 4)
Quarter: 2017Q4

REPORT INFORMATION
  Report Type: Report from Study
  Country: CA (occurrence: CA)
  Receive Date: 20170615
  Receipt Date: 20171110
  Transmission Date: 20180320
  Serious: Yes (Other)
  Sender: FDA-Public Use
  Company Number: CA-GLAXOSMITHKLINE-CA2017GSK087842

PATIENT
  Sex: Female

DRUGS (14)
  1. AMITRIPTYLINE [Concomitant]
     Active Substance: AMITRIPTYLINE
  2. ADVAIR HFA [Suspect]
     Active Substance: FLUTICASONE PROPIONATE\SALMETEROL XINAFOATE
     Indication: PRODUCT USED FOR UNKNOWN INDICATION
     Dosage: 2 PUFF(S), BID
  3. VENLAFAXINE [Concomitant]
     Active Substance: VENLAFAXINE HYDROCHLORIDE
  4. WELLBUTRIN [Concomitant]
     Active Substance: BUPROPION HYDROCHLORIDE
  5. TRAZODONE [Concomitant]
     Active Substance: TRAZODONE HYDROCHLORIDE
  6. DOCUSATE SODIUM. [Concomitant]
     Active Substance: DOCUSATE SODIUM
  7. QUETIAPINE. [Concomitant]
     Active Substance: QUETIAPINE
  8. SALBUTAMOL SULPHATE [Suspect]
     Active Substance: ALBUTEROL SULFATE
     Indication: PRODUCT USED FOR UNKNOWN INDICATION
     Dosage: UNK UNK, PRN
     Dates: start: 2001
  9. ALVESCO [Concomitant]
     Active Substance: CICLESONIDE
     Dosage: 2 PUFF(S), UNK
  10. SINGULAIR [Concomitant]
     Active Substance: MONTELUKAST SODIUM
     Dosage: 10 MG, UNK
  11. PREDNISONE. [Concomitant]
     Active Substance: PREDNISONE
     Dosage: UNK
  12. FOLIC ACID. [Concomitant]
     Active Substance: FOLIC ACID
  13. REACTIN [Concomitant]
     Active Substance: DICLOFENAC SODIUM
  14. NASONEX [Concomitant]
     Active Substance: MOMETASONE FUROATE

REACTIONS (14)
  - Limb operation [Unknown]
  - Depression [Unknown]
  - Pyruvate kinase decreased [Unknown]
  - Blood immunoglobulin E decreased [Unknown]
  - Arthropathy [Unknown]
  - Gastric banding [Unknown]
  - Knee operation [Unknown]
  - Asthma [Unknown]
  - Headache [Unknown]
  - Epilepsy [Unknown]
  - Cholecystectomy [Unknown]
  - Pain [Unknown]
  - Gastric disorder [Unknown]
  - Sleep disorder [Unknown]

NARRATIVE: CASE EVENT DATE: 1986
